FAERS Safety Report 6437021-3 (Version None)
Quarter: 2009Q4

REPORT INFORMATION
  Report Type: 
  Country: None (occurrence: None)
  Receive Date: 20091112
  Receipt Date: 20091103
  Transmission Date: 20100525
  Serious: Yes (Hospitalization)
  Sender: FDA-Public Use
  Company Number: BE-WYE-H12033509

PATIENT
  Age: 46 Year
  Sex: Male

DRUGS (4)
  1. PANTOMED [Suspect]
     Indication: GASTROOESOPHAGEAL REFLUX DISEASE
     Dosage: 20 MG EVERY 1 TOT
     Route: 048
     Dates: start: 20091027, end: 20091027
  2. LEDERTREXATE [Concomitant]
     Dosage: UNKNOWN
     Route: 048
  3. SALAZOPYRINE [Concomitant]
     Dosage: UNKNOWN
     Route: 048
  4. MEDROL [Concomitant]
     Dosage: UNKNOWN
     Route: 048

REACTIONS (4)
  - ERYTHEMA [None]
  - HYPERSENSITIVITY [None]
  - LOSS OF CONSCIOUSNESS [None]
  - PRURITUS [None]
